FAERS Safety Report 4627157-1 (Version None)
Quarter: 2005Q2

REPORT INFORMATION
  Report Type: 
  Country: None (occurrence: None)
  Receive Date: 20050405
  Receipt Date: 20050325
  Transmission Date: 20051028
  Serious: Yes (Life-Threatening, Hospitalization)
  Sender: FDA-Public Use
  Company Number: FR-GLAXOSMITHKLINE-B0376288A

PATIENT
  Age: 25 Year
  Sex: Male

DRUGS (1)
  1. CLAMOXYL [Suspect]
     Indication: TOOTH ABSCESS
     Dosage: 1UNIT PER DAY
     Route: 048
     Dates: start: 20050310, end: 20050310

REACTIONS (3)
  - ANAPHYLACTIC SHOCK [None]
  - ANGIONEUROTIC OEDEMA [None]
  - DYSPNOEA [None]
